FAERS Safety Report 6299102-7 (Version None)
Quarter: 2009Q3

REPORT INFORMATION
  Report Type: 
  Country: None (occurrence: None)
  Receive Date: 20090806
  Receipt Date: 20090803
  Transmission Date: 20100115
  Serious: Yes (Life-Threatening, Other)
  Sender: FDA-Public Use
  Company Number: PT-BRISTOL-MYERS SQUIBB COMPANY-14725048

PATIENT
  Age: 44 Year
  Sex: Female
  Weight: 53 kg

DRUGS (5)
  1. REYATAZ [Suspect]
     Dosage: REINTRODUCED ON 03JUL09, INTERRUPTED ON 18JUL09
     Route: 048
     Dates: start: 20090703
  2. EFAVIRENZ [Suspect]
     Indication: HIV INFECTION
     Dosage: SUSPENDED ON 18-JUL-2009
     Dates: start: 20090612
  3. RITONAVIR [Suspect]
     Dosage: SUSPENDED ON 18-JUL-2009
     Dates: start: 20090703
  4. TENOFOVIR DF + EMTRICITABINE [Suspect]
     Indication: HIV INFECTION
     Dosage: REINTRODUCED ON 03JUL2009 TOOK 200+245MG/DAY,INTERRUPTED ON 18JUL09
     Dates: start: 20090612
  5. LAMIVUDINE + ZIDOVUDINE [Suspect]

REACTIONS (5)
  - ANGIOEDEMA [None]
  - EYE INFLAMMATION [None]
  - EYE PRURITUS [None]
  - RASH GENERALISED [None]
  - TOXIC SKIN ERUPTION [None]
